FAERS Safety Report 6843994-7 (Version None)
Quarter: 2010Q2

REPORT INFORMATION
  Report Type: 
  Country: None (occurrence: None)
  Receive Date: 20100629
  Receipt Date: 20100416
  Transmission Date: 20101027
  Serious: No
  Sender: FDA-Public Use
  Company Number: US-WYE-H14628210

PATIENT
  Sex: Female

DRUGS (2)
  1. PRISTIQ [Suspect]
     Dates: start: 20100101, end: 20100404
  2. EFFEXOR XR [Suspect]
     Dosage: ORAL
     Route: 048
     Dates: start: 20100405

REACTIONS (1)
  - DIZZINESS [None]
